FAERS Safety Report 4502671-8 (Version None)
Quarter: 2004Q4

REPORT INFORMATION
  Report Type: 
  Country: None (occurrence: None)
  Receive Date: 20041110
  Receipt Date: 20040922
  Transmission Date: 20050328
  Serious: No
  Sender: FDA-Public Use
  Company Number: A01200405462

PATIENT
  Sex: Male

DRUGS (1)
  1. XATRAL XL-(ALFUZOSIN HYDROCHLORIDE) -TABLET PR- [Suspect]

REACTIONS (1)
  - ANGINA PECTORIS [None]
